FAERS Safety Report 7496028-8 (Version None)
Quarter: 2011Q2

REPORT INFORMATION
  Report Type: 
  Country: None (occurrence: None)
  Receive Date: 20110523
  Receipt Date: 20110519
  Transmission Date: 20111010
  Serious: Yes (Other)
  Sender: FDA-Public Use
  Company Number: US-JNJFOC-20110500287

PATIENT
  Sex: Male
  Weight: 77.57 kg

DRUGS (7)
  1. BUTRANS [Suspect]
     Indication: PAIN
     Route: 062
     Dates: start: 20110101, end: 20110301
  2. DEXAMETHASONE [Concomitant]
     Route: 048
  3. NUCYNTA [Suspect]
     Route: 048
     Dates: start: 20100101, end: 20110101
  4. NUCYNTA [Suspect]
     Indication: PAIN
     Route: 048
     Dates: start: 20110301
  5. ACETAMINOPHEN [Concomitant]
     Indication: PAIN
     Route: 048
  6. TRAMADOL HCL [Concomitant]
     Indication: PAIN
     Route: 048
  7. PREDNISONE [Concomitant]
     Indication: BEHCET'S SYNDROME
     Route: 048

REACTIONS (16)
  - BEHCET'S SYNDROME [None]
  - THERAPY CESSATION [None]
  - INSOMNIA [None]
  - DEPRESSION [None]
  - HEART RATE INCREASED [None]
  - CONSTIPATION [None]
  - MENTAL IMPAIRMENT [None]
  - BACK PAIN [None]
  - DIARRHOEA [None]
  - LOSS OF CONSCIOUSNESS [None]
  - HEADACHE [None]
  - NECK PAIN [None]
  - FEELING ABNORMAL [None]
  - ARTHRALGIA [None]
  - FATIGUE [None]
  - EYE PAIN [None]
